FAERS Safety Report 7348180-2 (Version None)
Quarter: 2011Q1

REPORT INFORMATION
  Report Type: 
  Country: None (occurrence: None)
  Receive Date: 20110311
  Receipt Date: 20110302
  Transmission Date: 20110831
  Serious: Yes (Other)
  Sender: FDA-Public Use
  Company Number: US-JNJFOC-20110100817

PATIENT
  Sex: Female
  Weight: 84.37 kg

DRUGS (7)
  1. REMICADE [Suspect]
     Indication: COLITIS ULCERATIVE
     Route: 065
  2. XYZAL [Suspect]
     Indication: ANTIALLERGIC THERAPY
     Route: 048
  3. NORVASC [Concomitant]
     Route: 048
  4. PREDNISONE [Concomitant]
     Indication: COLITIS ULCERATIVE
     Route: 048
  5. SPIRIVA [Concomitant]
     Indication: MULTIPLE ALLERGIES
     Route: 048
  6. ALBUTEROL [Concomitant]
     Indication: MULTIPLE ALLERGIES
  7. SERETIDE [Concomitant]
     Indication: MULTIPLE ALLERGIES

REACTIONS (4)
  - FATIGUE [None]
  - COLITIS ULCERATIVE [None]
  - BRONCHITIS [None]
  - LARYNGITIS [None]
